FAERS Safety Report 7465406-5 (Version None)
Quarter: 2011Q2

REPORT INFORMATION
  Report Type: 
  Country: None (occurrence: None)
  Receive Date: 20110509
  Receipt Date: 20100820
  Transmission Date: 20111010
  Serious: No
  Sender: FDA-Public Use
  Company Number: US-BAUSCH-2010BL004644

PATIENT
  Age: 80 Year
  Sex: Female

DRUGS (2)
  1. SYSTANE [Concomitant]
     Indication: DRY EYE
     Dates: start: 20100801
  2. LOTEMAX [Suspect]
     Indication: EYE PRURITUS
     Route: 047
     Dates: start: 20100817, end: 20100817

REACTIONS (3)
  - VOMITING [None]
  - MIGRAINE [None]
  - NAUSEA [None]
